FAERS Safety Report 7346793-5 (Version None)
Quarter: 2011Q1

REPORT INFORMATION
  Report Type: 
  Country: None (occurrence: None)
  Receive Date: 20110311
  Receipt Date: 20110228
  Transmission Date: 20110831
  Serious: Yes (Other)
  Sender: FDA-Public Use
  Company Number: GB-JNJFOC-20101106392

PATIENT
  Sex: Male
  Weight: 55 kg

DRUGS (3)
  1. HYDROCORTISONE [Concomitant]
     Indication: PREMEDICATION
     Route: 042
  2. REMICADE [Suspect]
     Indication: CROHN'S DISEASE
     Route: 042
  3. REMICADE [Suspect]
     Route: 042

REACTIONS (5)
  - FLUSHING [None]
  - CHEST DISCOMFORT [None]
  - TACHYCARDIA [None]
  - WHEEZING [None]
  - INFUSION RELATED REACTION [None]
